FAERS Safety Report 4275093-5 (Version None)
Quarter: 2004Q1

REPORT INFORMATION
  Report Type: 
  Country: None (occurrence: None)
  Receive Date: 20040116
  Receipt Date: 20040108
  Transmission Date: 20041129
  Serious: Yes (Other)
  Sender: FDA-Public Use
  Company Number: 2003122921

PATIENT
  Age: 77 Year
  Sex: Male

DRUGS (1)
  1. UNASYN [Suspect]
     Indication: RADIOFREQUENCY ABLATION
     Dosage: 3 GRAM (BID), INTRAVENOUS
     Route: 042

REACTIONS (1)
  - SHOCK [None]
